FAERS Safety Report 10168892 (Version 2)
Quarter: 2014Q2

REPORT INFORMATION
  Report Type: Report from Study
  Country: US (occurrence: US)
  Receive Date: 20140513
  Receipt Date: 20140513
  Transmission Date: 20141212
  Serious: Yes (Other)
  Sender: FDA-Public Use
  Company Number: PHEH2014US004707

PATIENT
  Age: 53 Year
  Sex: Male
  Weight: 185 kg

DRUGS (8)
  1. TASIGNA [Suspect]
     Indication: CHRONIC MYELOID LEUKAEMIA
     Dosage: 300 MG, BID
     Route: 048
     Dates: start: 20130829, end: 20131017
  2. TASIGNA [Suspect]
     Dosage: 150 MG BID AND THEN TO 300 MG IN MORNING AND 150 MG BID IN THE NIGHT
     Route: 048
  3. TASIGNA [Suspect]
     Dosage: 300 MG, BID
     Route: 048
     Dates: start: 20131225, end: 20140201
  4. TASIGNA [Suspect]
     Dosage: 150 MG, BID
     Route: 048
  5. TASIGNA [Suspect]
     Dosage: 300 MG IN THE MORNING AND 150 MG BID IN THE EVENING
     Route: 048
     Dates: start: 20140207, end: 20140306
  6. TASIGNA [Suspect]
     Dosage: 150 MG, QD
     Route: 048
     Dates: start: 20140327
  7. ALLOPURINOL [Concomitant]
     Dosage: UNK UKN, UNK
  8. MULTI-VIT [Concomitant]
     Dosage: UNK UKN, UNK

REACTIONS (6)
  - Platelet count decreased [Recovering/Resolving]
  - Diarrhoea [Unknown]
  - White blood cell count decreased [Unknown]
  - Haemoglobin increased [Unknown]
  - Rash [Unknown]
  - Skin lesion [Unknown]
